FAERS Safety Report 9847507 (Version 1)
Quarter: 2014Q1

REPORT INFORMATION
  Report Type: Spontaneous
  Country: US (occurrence: US)
  Receive Date: 20140127
  Receipt Date: 20140127
  Transmission Date: 20141002
  Serious: Yes (Death, Hospitalization)
  Sender: FDA-Public Use
  Company Number: US-JNJFOC-20140113352

PATIENT
  Sex: Male

DRUGS (23)
  1. BENADRYL [Suspect]
     Indication: PRURITUS
     Route: 048
  2. CLARITIN [Suspect]
     Indication: PRURITUS
  3. BANOPHEN [Concomitant]
     Indication: PRODUCT USED FOR UNKNOWN INDICATION
     Dosage: EVERY 6 HOURS AS NEEDED
     Route: 048
  4. BISACODYL [Concomitant]
     Indication: PRODUCT USED FOR UNKNOWN INDICATION
     Dosage: PRN
     Route: 054
  5. 50% DEXTROSE [Concomitant]
     Indication: PRODUCT USED FOR UNKNOWN INDICATION
     Dosage: PRN
     Route: 042
  6. 50% DEXTROSE [Concomitant]
     Indication: PRODUCT USED FOR UNKNOWN INDICATION
     Route: 042
  7. GLUCAGON [Concomitant]
     Indication: PRODUCT USED FOR UNKNOWN INDICATION
     Route: 030
  8. GLUTOSE [Concomitant]
     Indication: PRODUCT USED FOR UNKNOWN INDICATION
     Route: 065
  9. GLUTOSE [Concomitant]
     Indication: PRODUCT USED FOR UNKNOWN INDICATION
     Route: 065
  10. HUMULIN N [Concomitant]
     Indication: DIABETES MELLITUS
     Dosage: 20 UNITS TWICE DAILY BEFORE MEALS
     Route: 058
  11. INSULIN LISPRO [Concomitant]
     Indication: DIABETES MELLITUS
     Dosage: 2-12 UNITS 3X PER DAY BEFORE MEALS
     Route: 058
  12. LISINOPRIL [Concomitant]
     Indication: HYPERTENSION
     Route: 048
  13. LOVENOX [Concomitant]
     Indication: PRODUCT USED FOR UNKNOWN INDICATION
     Route: 058
  14. MAG-AL PLUS XS [Concomitant]
     Indication: PRODUCT USED FOR UNKNOWN INDICATION
     Dosage: EVERY 4 HOURS AS NEEDED
     Route: 048
  15. MILK OF MAGNESIA [Concomitant]
     Indication: PRODUCT USED FOR UNKNOWN INDICATION
     Route: 048
  16. MOTRIN [Concomitant]
     Indication: PRODUCT USED FOR UNKNOWN INDICATION
     Route: 048
  17. NOVOLIN N [Concomitant]
     Indication: DIABETES MELLITUS
     Dosage: 35 UNITS DAILY IN THE MORNING
     Route: 058
  18. NOVOLIN N [Concomitant]
     Indication: DIABETES MELLITUS
     Dosage: 25 UNITS/DAILY BEFORE DINNER
     Route: 058
  19. ONDANSETRON [Concomitant]
     Indication: PRODUCT USED FOR UNKNOWN INDICATION
     Dosage: EVERY 6 HOURS AS NEEDED
     Route: 042
  20. PRAVASTATIN [Concomitant]
     Indication: BLOOD CHOLESTEROL INCREASED
     Route: 048
  21. RIFADIN [Concomitant]
     Indication: PRODUCT USED FOR UNKNOWN INDICATION
     Route: 048
  22. TRAZODONE [Concomitant]
     Indication: PRODUCT USED FOR UNKNOWN INDICATION
     Dosage: DAILY AT BEDTIME AND MAY REPEAT AS NEEDED
     Route: 048
  23. QUESTRAN [Concomitant]
     Indication: DIARRHOEA
     Route: 048

REACTIONS (2)
  - Pancreatic carcinoma metastatic [Fatal]
  - Drug ineffective [Unknown]
